FAERS Safety Report 11473469 (Version 1)
Quarter: 2015Q3

REPORT INFORMATION
  Report Type: Spontaneous
  Country: US (occurrence: None)
  Receive Date: 20150908
  Receipt Date: 20150908
  Transmission Date: 20151125
  Serious: No
  Sender: FDA-Public Use
  Company Number: None

PATIENT
  Age: 78 Year
  Sex: Female
  Weight: 59.88 kg

DRUGS (16)
  1. D3 [Concomitant]
     Active Substance: 25-HYDROXYCHOLECALCIFEROL, 5-TRANS-
  2. FISH OIL [Concomitant]
     Active Substance: FISH OIL
  3. ALPHAGAN P [Concomitant]
     Active Substance: BRIMONIDINE TARTRATE
  4. CALCIUM [Concomitant]
     Active Substance: CALCIUM
  5. SUPER B COMPLEX [Concomitant]
     Active Substance: CYANOCOBALAMIN\DEXPANTHENOL\NIACINAMIDE\PYRIDOXINE HYDROCHLORIDE\RIBOFLAVIN 5^-PHOSPHATE SODIUM\THIAMINE HYDROCHLORIDE\VITAMIN B COMPLEX
  6. BROMPHENIRAMINE MALEATE, PSEUDOEPHEDRINE HYDROCHLORIDE AND DEXTROMETHORPHANHYDROBROMIDE [Suspect]
     Active Substance: BROMPHENIRAMINE MALEATE\DEXTROMETHORPHAN HYDROBROMIDE\PSEUDOEPHEDRINE HYDROCHLORIDE
     Indication: NASAL DECONGESTION THERAPY
     Dosage: TAKE 10 ML BY MOUTH EVERY 4 HRS MAX 60 ML PER DAY. UP TO 5 TIMES PER DAY OF 10ML BY MOUTH.
     Route: 048
     Dates: start: 20150704, end: 20150706
  7. BROMPHENIRAMINE MALEATE, PSEUDOEPHEDRINE HYDROCHLORIDE AND DEXTROMETHORPHANHYDROBROMIDE [Suspect]
     Active Substance: BROMPHENIRAMINE MALEATE\DEXTROMETHORPHAN HYDROBROMIDE\PSEUDOEPHEDRINE HYDROCHLORIDE
     Indication: ANTIALLERGIC THERAPY
     Dosage: TAKE 10 ML BY MOUTH EVERY 4 HRS MAX 60 ML PER DAY. UP TO 5 TIMES PER DAY OF 10ML BY MOUTH.
     Route: 048
     Dates: start: 20150704, end: 20150706
  8. BROMPHENIRAMINE MALEATE, PSEUDOEPHEDRINE HYDROCHLORIDE AND DEXTROMETHORPHANHYDROBROMIDE [Suspect]
     Active Substance: BROMPHENIRAMINE MALEATE\DEXTROMETHORPHAN HYDROBROMIDE\PSEUDOEPHEDRINE HYDROCHLORIDE
     Indication: COUGH
     Dosage: TAKE 10 ML BY MOUTH EVERY 4 HRS MAX 60 ML PER DAY. UP TO 5 TIMES PER DAY OF 10ML BY MOUTH.
     Route: 048
     Dates: start: 20150704, end: 20150706
  9. ACETAZOLAMIDE. [Concomitant]
     Active Substance: ACETAZOLAMIDE
  10. DORZOLAMIDE HCL TIMOLOL MALEATE OPHTHALMIC SOLUTION [Concomitant]
     Active Substance: DORZOLAMIDE HYDROCHLORIDE\TIMOLOL MALEATE
  11. ACYCLOVIR. [Concomitant]
     Active Substance: ACYCLOVIR
  12. TRAVATAN Z [Concomitant]
     Active Substance: TRAVOPROST
  13. MULTIVITAMINS [Concomitant]
     Active Substance: VITAMINS
  14. VITAMIN C [Concomitant]
     Active Substance: ASCORBIC ACID
  15. COUMADIN (WARFARIN) [Concomitant]
  16. FOLIC ACID. [Concomitant]
     Active Substance: FOLIC ACID

REACTIONS (7)
  - Somnolence [None]
  - Dizziness [None]
  - Vomiting [None]
  - Fatigue [None]
  - Dry mouth [None]
  - Pollakiuria [None]
  - Asthenia [None]

NARRATIVE: CASE EVENT DATE: 20150706
